FAERS Safety Report 4642304-3 (Version None)
Quarter: 2005Q2

REPORT INFORMATION
  Report Type: 
  Country: None (occurrence: None)
  Receive Date: 20050420
  Receipt Date: 20050407
  Transmission Date: 20051028
  Serious: Yes (Other)
  Sender: FDA-Public Use
  Company Number: 2005057180

PATIENT
  Sex: Female

DRUGS (1)
  1. DEPO-PROVERA [Suspect]
     Indication: CONTRACEPTION
     Dosage: 150 MG (150 MG, 1ST INJECTION/3 MONTHS), UNKNOWN
     Dates: start: 20040101, end: 20040101

REACTIONS (1)
  - MUSCLE DISORDER [None]
